FAERS Safety Report 8616805-7 (Version None)
Quarter: 2012Q3

REPORT INFORMATION
  Report Type: 
  Country: None (occurrence: None)
  Receive Date: 20120823
  Receipt Date: 20120806
  Transmission Date: 20120928
  Serious: No
  Sender: FDA-Public Use
  Company Number: US-009507513-1208USA003246

PATIENT

DRUGS (11)
  1. VICODIN [Concomitant]
  2. ABILIFY [Concomitant]
  3. XANAX [Concomitant]
  4. PRILOSEC [Concomitant]
  5. SOMA [Concomitant]
  6. PROVENTIL [Concomitant]
  7. PEG-INTRON [Suspect]
     Indication: HEPATITIS C
     Dosage: 150 MICROGRAM, QW
     Dates: start: 20120514
  8. FLONASE [Concomitant]
  9. SAVELLA [Concomitant]
  10. SEROQUEL [Concomitant]
  11. OXYCODONE HCL [Concomitant]

REACTIONS (3)
  - INJECTION SITE RASH [None]
  - FATIGUE [None]
  - DRUG DOSE OMISSION [None]
